FAERS Safety Report 6501806-5 (Version None)
Quarter: 2009Q4

REPORT INFORMATION
  Report Type: 
  Country: None (occurrence: None)
  Receive Date: 20091216
  Receipt Date: 20091016
  Transmission Date: 20100525
  Serious: Yes (Other)
  Sender: FDA-Public Use
  Company Number: US-AMGEN-QUU365480

PATIENT
  Age: 64 Year
  Sex: Male
  Weight: 121.7 kg

DRUGS (23)
  1. ARANESP [Suspect]
     Indication: RENAL FAILURE CHRONIC
     Route: 058
     Dates: start: 20090331
  2. GLIPIZIDE [Concomitant]
  3. BYETTA [Concomitant]
  4. CARVEDILOL [Concomitant]
  5. BUMETANIDE [Concomitant]
  6. HYDRALAZINE HCL [Concomitant]
  7. ISOSORBIDE [Concomitant]
  8. METOLAZONE [Concomitant]
  9. IMIPRAMINE [Concomitant]
  10. ALLOPURINOL [Concomitant]
  11. LIPITOR [Concomitant]
  12. ASPIRIN [Concomitant]
  13. NITROGLYCERIN [Concomitant]
  14. MAGNESIUM [Concomitant]
  15. VITAMIN D [Concomitant]
  16. VITAMIN B-12 [Concomitant]
  17. FERROUS SULFATE TAB [Concomitant]
  18. CENTRUM SILVER [Concomitant]
  19. GLUCOSAMINE [Concomitant]
  20. FUROSEMIDE [Concomitant]
  21. LISINOPRIL [Concomitant]
  22. FERROUS SULFATE/VITAMINS NOS [Concomitant]
     Dates: start: 20090501
  23. ACETAMINOPHEN W/ASPIRIN [Concomitant]

REACTIONS (4)
  - CARDIAC FAILURE CONGESTIVE [None]
  - CONSTIPATION [None]
  - HYPOKALAEMIA [None]
  - HYPONATRAEMIA [None]
